FAERS Safety Report 8781066 (Version 2)
Quarter: 2013Q2

REPORT INFORMATION
  Report Type: Spontaneous
  Country: US (occurrence: US)
  Receive Date: 20120913
  Receipt Date: 20130408
  Transmission Date: 20140414
  Serious: Yes (Hospitalization)
  Sender: FDA-Public Use
  Company Number: US-ASTRAZENECA-2012SE69657

PATIENT
  Age: 45 Year
  Sex: Male
  Weight: 86.2 kg

DRUGS (7)
  1. SEROQUEL [Suspect]
     Indication: INSOMNIA
     Route: 048
  2. SEROQUEL [Suspect]
     Indication: SLEEP DISORDER
     Route: 048
  3. NAPROXEN [Suspect]
     Route: 065
  4. XANAX [Concomitant]
     Indication: DEPRESSION
     Route: 048
  5. LORTAB [Concomitant]
     Indication: PAIN
  6. LEVAQUIN [Concomitant]
     Indication: PNEUMONIA
  7. CIPRO [Concomitant]
     Indication: PNEUMONIA

REACTIONS (6)
  - Pneumonia [Unknown]
  - Oesophageal disorder [Unknown]
  - Haemorrhage [Unknown]
  - Insomnia [Unknown]
  - Drug dose omission [Unknown]
  - Off label use [Unknown]
